FAERS Safety Report 9753210 (Version 1)
Quarter: 2013Q4

REPORT INFORMATION
  Report Type: Spontaneous
  Country: US (occurrence: US)
  Receive Date: 20131213
  Receipt Date: 20131213
  Transmission Date: 20140711
  Serious: Yes (Hospitalization)
  Sender: FDA-Public Use
  Company Number: US-GILEAD-2010-0027317

PATIENT
  Sex: Female
  Weight: 63.5 kg

DRUGS (6)
  1. LETAIRIS [Suspect]
     Indication: PULMONARY ARTERIAL HYPERTENSION
     Route: 048
     Dates: start: 20090203
  2. ASPIRIN [Concomitant]
  3. DEMADEX [Concomitant]
  4. TETRACYCLINE [Concomitant]
  5. POTASSIUM CHLORIDE [Concomitant]
  6. VITAMIN E [Concomitant]

REACTIONS (2)
  - Local swelling [Unknown]
  - Burning sensation [Unknown]
